FAERS Safety Report 8763661 (Version 1)
Quarter: 2012Q4

REPORT INFORMATION
  Report Type: Spontaneous
  Country: US (occurrence: None)
  Receive Date: 20120831
  Receipt Date: 20120831
  Transmission Date: 20130627
  Serious: Yes (Hospitalization)
  Sender: FDA-Public Use
  Company Number: None

PATIENT
  Age: 24 Year
  Sex: Female
  Weight: 52 kg

DRUGS (1)
  1. PHENYTOIN [Suspect]
     Indication: SEIZURES
     Dosage: Q8
     Route: 048

REACTIONS (2)
  - Convulsion [None]
  - Vomiting [None]
